FAERS Safety Report 14742513 (Version 1)
Quarter: 2018Q2

REPORT INFORMATION
  Report Type: Spontaneous
  Country: ES (occurrence: ES)
  Receive Date: 20180410
  Receipt Date: 20180410
  Transmission Date: 20180711
  Serious: Yes (Other)
  Sender: FDA-Public Use
  Company Number: ES-TEVA-2018-ES-876172

PATIENT
  Age: 79 Year
  Sex: Male

DRUGS (1)
  1. BUDESONIDA ALDO-UNI?N [Suspect]
     Active Substance: BUDESONIDE
     Indication: BRONCHITIS CHRONIC
     Dosage: 2 AMPOULES A DAY
     Route: 055
     Dates: start: 20180313, end: 20180314

REACTIONS (2)
  - Urticaria [Recovered/Resolved]
  - Asphyxia [Recovered/Resolved]

NARRATIVE: CASE EVENT DATE: 20180314
